FAERS Safety Report 16944021 (Version 1)
Quarter: 2019Q4

REPORT INFORMATION
  Report Type: Spontaneous
  Country: PT (occurrence: PT)
  Receive Date: 20191022
  Receipt Date: 20191022
  Transmission Date: 20200122
  Serious: Yes (Hospitalization, Other)
  Sender: FDA-Public Use
  Company Number: PT-NOVAST LABORATORIES LTD.-2019NOV000296

PATIENT
  Age: 77 Year
  Sex: Male

DRUGS (1)
  1. METHYLPREDNISOLONE. [Suspect]
     Active Substance: METHYLPREDNISOLONE
     Indication: IMMUNOSUPPRESSION
     Dosage: 32 MILLIGRAM, QD
     Route: 065

REACTIONS (2)
  - Steroid diabetes [Unknown]
  - Nocardiosis [Recovering/Resolving]
